FAERS Safety Report 19788636 (Version 1)
Quarter: 2021Q3

REPORT INFORMATION
  Report Type: Report from Study
  Country: None (occurrence: PR)
  Receive Date: 20210904
  Receipt Date: 20210904
  Transmission Date: 20211014
  Serious: Yes (Other)
  Sender: FDA-Public Use
  Company Number: PR-ABBVIE-21K-131-4063935-00

PATIENT
  Sex: Male
  Weight: 81.72 kg

DRUGS (16)
  1. HUMIRA [Suspect]
     Active Substance: ADALIMUMAB
     Indication: COLITIS ULCERATIVE
     Route: 058
     Dates: start: 20150219, end: 201905
  2. HUMALOG MIX [Concomitant]
     Active Substance: INSULIN LISPRO
     Indication: DIABETES MELLITUS
     Dosage: 50/50
     Dates: start: 20210825
  3. ENALAPRIL [Concomitant]
     Active Substance: ENALAPRIL
     Indication: HYPERTENSION
     Route: 048
  4. TEMAZEPAM. [Concomitant]
     Active Substance: TEMAZEPAM
     Indication: SLEEP DISORDER
     Dosage: RESTORIL
     Route: 048
  5. HUMIRA [Suspect]
     Active Substance: ADALIMUMAB
     Indication: PSORIATIC ARTHROPATHY
     Route: 058
     Dates: start: 20121217
  6. HUMIRA [Suspect]
     Active Substance: ADALIMUMAB
     Route: 058
  7. EMPAGLIFLOZIN;METFORMIN [Concomitant]
     Active Substance: EMPAGLIFLOZIN\METFORMIN HYDROCHLORIDE
     Indication: DIABETES MELLITUS
     Dosage: 5/500MG?SYNJARDY
     Route: 048
     Dates: start: 20210825
  8. CLONAZEPAM. [Concomitant]
     Active Substance: CLONAZEPAM
     Indication: ANXIETY
     Route: 048
  9. ATORVASTATIN [Concomitant]
     Active Substance: ATORVASTATIN
     Indication: BLOOD CHOLESTEROL
     Route: 048
  10. HUMIRA [Suspect]
     Active Substance: ADALIMUMAB
     Route: 058
  11. COVID?19 VACCINE MRNA (MRNA 1273) [Concomitant]
     Dosage: 2ND DOSE
     Route: 030
     Dates: start: 20210421, end: 20210421
  12. HUMIRA [Suspect]
     Active Substance: ADALIMUMAB
     Route: 058
     Dates: start: 20190619
  13. FENOFIBRATE. [Concomitant]
     Active Substance: FENOFIBRATE
     Indication: BLOOD TRIGLYCERIDES
     Route: 048
  14. COVID?19 VACCINE MRNA (MRNA 1273) [Concomitant]
     Indication: COVID-19
     Dosage: 1ST DOSE
     Route: 030
     Dates: start: 202103, end: 202103
  15. SULINDAC. [Concomitant]
     Active Substance: SULINDAC
     Indication: PAIN
     Route: 048
     Dates: start: 202004
  16. CYCLOBENZAPRINE. [Concomitant]
     Active Substance: CYCLOBENZAPRINE
     Indication: MUSCLE RELAXANT THERAPY
     Dosage: FLEXERIL
     Route: 048
     Dates: start: 202004

REACTIONS (1)
  - Umbilical hernia [Unknown]

NARRATIVE: CASE EVENT DATE: 2015
